FAERS Safety Report 8998981 (Version 1)
Quarter: 2013Q1

REPORT INFORMATION
  Report Type: Spontaneous
  Country: US (occurrence: US)
  Receive Date: 20130103
  Receipt Date: 20130103
  Transmission Date: 20140127
  Serious: No
  Sender: FDA-Public Use
  Company Number: US-PFIZER INC-2012329832

PATIENT
  Age: 62 Year
  Sex: Male

DRUGS (2)
  1. SOMAVERT [Suspect]
     Indication: ACROMEGALY
     Dosage: 20 MG, 1X/DAY
     Route: 058
     Dates: start: 201209
  2. SOMAVERT [Suspect]
     Indication: GIGANTISM

REACTIONS (1)
  - Injection site pain [Unknown]
